FAERS Safety Report 12330237 (Version 5)
Quarter: 2016Q4

REPORT INFORMATION
  Report Type: Report from Study
  Country: FR (occurrence: FR)
  Receive Date: 20160504
  Receipt Date: 20161215
  Transmission Date: 20170207
  Serious: Yes (Hospitalization, Other)
  Sender: FDA-Public Use
  Company Number: FR-ROCHE-1750577

PATIENT
  Age: 41 Year
  Sex: Male
  Weight: 59 kg

DRUGS (2)
  1. LENALIDOMIDE [Suspect]
     Active Substance: LENALIDOMIDE
     Indication: DIFFUSE LARGE B-CELL LYMPHOMA REFRACTORY
     Dosage: INDUCTION PHASE CYCLE 1?LAST DOSE PRIOR TO SAE: 26/APR/2016
     Route: 048
     Dates: start: 20160418
  2. OBINUTUZUMAB [Suspect]
     Active Substance: OBINUTUZUMAB
     Indication: DIFFUSE LARGE B-CELL LYMPHOMA REFRACTORY
     Dosage: LAST DOSE PRIOR TO SAE ON 26/APR/2016.?INDUCTION PHASE CYCLE 1
     Route: 042
     Dates: start: 20160426

REACTIONS (2)
  - Necrosis [Recovered/Resolved]
  - Pyrexia [Recovered/Resolved]

NARRATIVE: CASE EVENT DATE: 20160427
